FAERS Safety Report 7068739-X (Version None)
Quarter: 2010Q4

REPORT INFORMATION
  Report Type: 
  Country: None (occurrence: None)
  Receive Date: 20101028
  Receipt Date: 20101022
  Transmission Date: 20110411
  Serious: Yes (Death, Life-Threatening, Other)
  Sender: FDA-Public Use
  Company Number: JP-PFIZER INC-2009166267

PATIENT
  Age: 67 Year
  Sex: Male
  Weight: 59.5 kg

DRUGS (9)
  1. SUNITINIB MALATE [Suspect]
     Indication: RENAL CELL CARCINOMA
     Dosage: 50 MG, 1X/DAY
     Route: 048
     Dates: start: 20081119, end: 20081213
  2. PRAVASTATIN SODIUM [Concomitant]
  3. NITRODERM [Concomitant]
  4. ISOSORBIDE DINITRATE [Concomitant]
  5. CAPTOPRIL [Concomitant]
  6. NICORANDIL [Concomitant]
  7. DILTIAZEM HYDROCHLORIDE [Concomitant]
  8. 8-HOUR BAYER [Concomitant]
  9. PHARLODINE [Concomitant]

REACTIONS (7)
  - BONE MARROW FAILURE [None]
  - DISEASE PROGRESSION [None]
  - GASTRODUODENITIS [None]
  - HYPERTENSION [None]
  - INTERSTITIAL LUNG DISEASE [None]
  - RASH [None]
  - RENAL CELL CARCINOMA [None]
